FAERS Safety Report 11045575 (Version 1)
Quarter: 2015Q2

REPORT INFORMATION
  Report Type: Spontaneous
  Country: ES (occurrence: ES)
  Receive Date: 20150417
  Receipt Date: 20150417
  Transmission Date: 20150821
  Serious: Yes (Hospitalization, Other)
  Sender: FDA-Public Use
  Company Number: ES-APOTEX-2015AP008224

PATIENT
  Age: 72 Year
  Sex: Female
  Weight: 67 kg

DRUGS (10)
  1. PAXIL [Suspect]
     Active Substance: PAROXETINE HYDROCHLORIDE
     Indication: PRODUCT USED FOR UNKNOWN INDICATION
     Dosage: 20 MG, Q.AM
     Dates: start: 20140314
  2. SALBUTAMOL [Concomitant]
     Active Substance: ALBUTEROL
     Indication: PRODUCT USED FOR UNKNOWN INDICATION
     Dosage: UNK, PRN
  3. BARNIX [Concomitant]
     Indication: PRODUCT USED FOR UNKNOWN INDICATION
     Dosage: 20 UNK, Q.AM
  4. ADIRO [Suspect]
     Active Substance: ASPIRIN
     Indication: PRODUCT USED FOR UNKNOWN INDICATION
     Dosage: 100 UNK, UNK
     Dates: start: 20140827
  5. APROVEL [Suspect]
     Active Substance: IRBESARTAN
     Indication: PRODUCT USED FOR UNKNOWN INDICATION
     Dosage: 300 UNK, Q.AM
     Dates: start: 20140526
  6. ORFIDAL [Concomitant]
     Active Substance: LORAZEPAM
     Indication: PRODUCT USED FOR UNKNOWN INDICATION
     Dosage: 1 UNK, 0, 5-0-0
  7. UNIKET [Concomitant]
     Active Substance: ISOSORBIDE MONONITRATE
     Indication: PRODUCT USED FOR UNKNOWN INDICATION
     Dosage: 20 UNK, BID
  8. ATORVASTATIN [Suspect]
     Active Substance: ATORVASTATIN
     Indication: ANGINA UNSTABLE
     Dosage: 40 MG, Q.H.S.
     Route: 048
     Dates: start: 20150210, end: 20150313
  9. ATORVASTATIN [Suspect]
     Active Substance: ATORVASTATIN
     Dosage: 20 MG, UNK
  10. NOCTAMID [Concomitant]
     Active Substance: LORMETAZEPAM
     Indication: PRODUCT USED FOR UNKNOWN INDICATION
     Dosage: 2 MG, Q.H.S.

REACTIONS (6)
  - Chromaturia [Unknown]
  - Diarrhoea [Recovered/Resolved]
  - Pruritus generalised [Recovering/Resolving]
  - Hepatitis acute [Recovering/Resolving]
  - Liver function test abnormal [Recovering/Resolving]
  - Vomiting [Recovered/Resolved]

NARRATIVE: CASE EVENT DATE: 20150217
